FAERS Safety Report 11534317 (Version 2)
Quarter: 2015Q3

REPORT INFORMATION
  Report Type: Spontaneous
  Country: JP (occurrence: JP)
  Receive Date: 20150922
  Receipt Date: 20150923
  Transmission Date: 20151125
  Serious: Yes (Death, Hospitalization)
  Sender: FDA-Public Use
  Company Number: JP-ROCHE-1634814

PATIENT
  Age: 59 Year
  Sex: Male

DRUGS (1)
  1. XELODA [Suspect]
     Active Substance: CAPECITABINE
     Indication: GASTRIC CANCER
     Dosage: DOSAGE IS UNCERTAIN.?LAST DOSE ON APR/2014.
     Route: 048
     Dates: start: 201312

REACTIONS (3)
  - Inadequate diet [Unknown]
  - Gastric cancer [Fatal]
  - Malaise [Unknown]
